FAERS Safety Report 4725102-1 (Version None)
Quarter: 2005Q3

REPORT INFORMATION
  Report Type: 
  Country: None (occurrence: None)
  Receive Date: 20050721
  Receipt Date: 20050706
  Transmission Date: 20060218
  Serious: Yes (Hospitalization)
  Sender: FDA-Public Use
  Company Number: VIS10198.2005

PATIENT
  Age: 60 Year
  Sex: Female

DRUGS (2)
  1. VISICOL [Suspect]
     Indication: COLONOSCOPY
     Dosage: 42 G ONCE PO
     Route: 048
  2. DULCOLAX [Concomitant]

REACTIONS (4)
  - BLOOD CALCIUM DECREASED [None]
  - BLOOD PHOSPHORUS INCREASED [None]
  - DEHYDRATION [None]
  - RENAL FAILURE [None]
